FAERS Safety Report 10202614 (Version 1)
Quarter: 2014Q2

REPORT INFORMATION
  Report Type: Spontaneous
  Country: IT (occurrence: IT)
  Receive Date: 20140528
  Receipt Date: 20140528
  Transmission Date: 20141212
  Serious: Yes (Hospitalization)
  Sender: FDA-Public Use
  Company Number: IT-WATSON-2014-10918

PATIENT
  Age: 14 Year
  Sex: Female

DRUGS (3)
  1. VENLAFAXINE (UNKNOWN) [Suspect]
     Indication: DRUG ABUSE
     Dosage: 600 MG, TOTAL
     Route: 048
     Dates: start: 20140423, end: 20140423
  2. LORAZEPAM [Suspect]
     Indication: DRUG ABUSE
     Dosage: 5 MG, TOTAL
     Route: 048
     Dates: start: 20140423, end: 20140423
  3. ESTAZOLAM (WATSON LABORATORIES) [Suspect]
     Indication: DRUG ABUSE
     Dosage: 24 MG, TOTAL
     Route: 048
     Dates: start: 20140423, end: 20140423

REACTIONS (3)
  - Sopor [Unknown]
  - Hypoglycaemia [Unknown]
  - Drug abuse [Unknown]
